FAERS Safety Report 4988332-X (Version None)
Quarter: 2006Q2

REPORT INFORMATION
  Report Type: 
  Country: None (occurrence: None)
  Receive Date: 20060425
  Receipt Date: 20060418
  Transmission Date: 20061013
  Serious: Yes (Disabling)
  Sender: FDA-Public Use
  Company Number: A044-002-005961

PATIENT
  Age: 67 Year
  Sex: Male

DRUGS (10)
  1. ARICEPT [Suspect]
     Indication: DEMENTIA ALZHEIMER'S TYPE
     Dosage: 10 MG, 1 IN 1 D, ORAL
     Route: 048
     Dates: start: 20010720, end: 20060207
  2. CHLORPROMAZINE [Suspect]
     Indication: AGITATION
     Dosage: 75 MG, 3 IN 1 D, ORAL
     Route: 048
     Dates: start: 20060207, end: 20060211
  3. PROCYCLIDINE HYDROCHLORIDE 2MG TAB [Suspect]
     Indication: EXTRAPYRAMIDAL DISORDER
     Dosage: 5 MG, 2 IN 1 D
     Dates: start: 20060210, end: 20060213
  4. BENDROFLUAZIDE (BENDROFLUMETHIAZIDE) [Concomitant]
  5. ALLOPURINOL [Concomitant]
  6. ASPIRIN [Concomitant]
  7. AMLODIPINE [Concomitant]
  8. CITALOPRAM (CITALOPRAM) [Concomitant]
  9. TEMAZEPAM [Concomitant]
  10. TRIMETHOPRIM [Concomitant]

REACTIONS (21)
  - AGGRESSION [None]
  - ANXIETY [None]
  - ASTHENIA [None]
  - BLOOD CREATININE INCREASED [None]
  - BLOOD POTASSIUM INCREASED [None]
  - BLOOD SODIUM INCREASED [None]
  - BODY TEMPERATURE INCREASED [None]
  - C-REACTIVE PROTEIN INCREASED [None]
  - CONDITION AGGRAVATED [None]
  - CONFUSIONAL STATE [None]
  - DELIRIUM [None]
  - DEMENTIA [None]
  - DRUG INTERACTION [None]
  - DRUG WITHDRAWAL SYNDROME [None]
  - DYSKINESIA [None]
  - HALLUCINATION, VISUAL [None]
  - MUSCLE RIGIDITY [None]
  - MYOCLONIC EPILEPSY [None]
  - NEUROLEPTIC MALIGNANT SYNDROME [None]
  - PETIT MAL EPILEPSY [None]
  - TREMOR [None]
